FAERS Safety Report 24774402 (Version 1)
Quarter: 2024Q4

REPORT INFORMATION
  Report Type: Spontaneous
  Country: JP (occurrence: JP)
  Receive Date: 20241225
  Receipt Date: 20241225
  Transmission Date: 20250115
  Serious: Yes (Death, Hospitalization, Disabling, Other)
  Sender: ASTELLAS
  Company Number: JP-ASTELLAS-2024-AER-007962

PATIENT
  Age: 7 Decade
  Sex: Male
  Weight: 51 kg

DRUGS (9)
  1. VYLOY [Suspect]
     Active Substance: ZOLBETUXIMAB-CLZB
     Indication: Gastric cancer recurrent
     Route: 042
     Dates: end: 20240919
  2. VYLOY [Suspect]
     Active Substance: ZOLBETUXIMAB-CLZB
     Route: 042
     Dates: start: 20241010, end: 20241010
  3. OLANZAPINE [Suspect]
     Active Substance: OLANZAPINE
     Indication: Prophylaxis
     Route: 065
     Dates: end: 20240918
  4. PRIMPERAN [Concomitant]
     Active Substance: METOCLOPRAMIDE HYDROCHLORIDE
     Indication: Nausea
     Route: 065
     Dates: start: 20240919
  5. CAPECITABINE [Concomitant]
     Active Substance: CAPECITABINE
     Indication: Gastric cancer recurrent
     Route: 048
     Dates: start: 20240919, end: 20241010
  6. Oxaliplatin for I.V.Infusion [Concomitant]
     Indication: Gastric cancer recurrent
     Route: 042
     Dates: start: 20240919, end: 20241010
  7. Fentanyl Citrate Tape [Concomitant]
     Indication: Cancer pain
     Route: 062
     Dates: start: 20240922, end: 20241108
  8. Merislon Tablet [Concomitant]
     Indication: Vertigo
     Route: 048
     Dates: start: 20240923, end: 20241104
  9. OXIFAST Injection [Concomitant]
     Indication: Cancer pain
     Dosage: PERSISTENCE
     Route: 058
     Dates: start: 20241108, end: 20241111

REACTIONS (11)
  - Ascites [Not Recovered/Not Resolved]
  - Renal failure [Not Recovered/Not Resolved]
  - Vertigo [Recovering/Resolving]
  - Cerebellar infarction [Not Recovered/Not Resolved]
  - Malignant neoplasm progression [Fatal]
  - Dizziness [Not Recovered/Not Resolved]
  - Renal impairment [Not Recovered/Not Resolved]
  - Somnolence [Recovered/Resolved]
  - Nausea [Recovered/Resolved]
  - Incontinence [Recovered/Resolved]
  - Visual field defect [Unknown]

NARRATIVE: CASE EVENT DATE: 20240901
